FAERS Safety Report 4600659-X (Version None)
Quarter: 2005Q1

REPORT INFORMATION
  Report Type: 
  Country: None (occurrence: None)
  Receive Date: 20050304
  Receipt Date: 20050216
  Transmission Date: 20050727
  Serious: Yes (Other)
  Sender: FDA-Public Use
  Company Number: 2005038173

PATIENT
  Sex: Female

DRUGS (1)
  1. DOXORUBICIN HYDROCHLORIDE [Suspect]
     Indication: ILL-DEFINED DISORDER
     Dosage: (CYCLIC), INTRAVENOUS
     Route: 042

REACTIONS (2)
  - CAROTID ARTERY OCCLUSION [None]
  - ISCHAEMIC STROKE [None]
